FAERS Safety Report 21986706 (Version 1)
Quarter: 2023Q1

REPORT INFORMATION
  Report Type: Spontaneous
  Country: None (occurrence: US)
  Receive Date: 20230213
  Receipt Date: 20230213
  Transmission Date: 20230418
  Serious: No
  Sender: FDA-Public Use
  Company Number: US-B.Braun Medical Inc.-2137879

PATIENT
  Age: 22 Year
  Sex: Female
  Weight: 107.27 kg

DRUGS (1)
  1. BUPIVACAINE HYDROCHLORIDE WITH DEXTROSE [Suspect]
     Active Substance: BUPIVACAINE HYDROCHLORIDE

REACTIONS (3)
  - Blood pressure increased [Recovering/Resolving]
  - Headache [Recovering/Resolving]
  - Exposure during pregnancy [Recovering/Resolving]
